FAERS Safety Report 19947126 (Version 1)
Quarter: 2021Q4

REPORT INFORMATION
  Report Type: Report from Study
  Country: US (occurrence: US)
  Receive Date: 20211012
  Receipt Date: 20211012
  Transmission Date: 20220303
  Serious: Yes (Hospitalization, Other)
  Sender: FDA-Public Use
  Company Number: US-BAYER-2021-190783

PATIENT
  Age: 60 Year
  Sex: Female

DRUGS (3)
  1. STIVARGA [Suspect]
     Active Substance: REGORAFENIB
     Indication: Colorectal cancer
     Dosage: 80 MG DAILY
     Route: 048
     Dates: start: 20210805
  2. STIVARGA [Suspect]
     Active Substance: REGORAFENIB
     Indication: Colorectal cancer
     Dosage: DAILY DOSE 120 MG
     Route: 048
     Dates: start: 20210812, end: 20210818
  3. STIVARGA [Suspect]
     Active Substance: REGORAFENIB
     Indication: Colorectal cancer
     Dosage: DAILY DOSE 40 MG
     Dates: start: 20210908, end: 20211001

REACTIONS (11)
  - Blister [Recovered/Resolved]
  - Mobility decreased [Not Recovered/Not Resolved]
  - Erythema [None]
  - Feeling cold [Not Recovered/Not Resolved]
  - Impaired self-care [Not Recovered/Not Resolved]
  - Rash erythematous [Not Recovered/Not Resolved]
  - Frequent bowel movements [None]
  - Pain in extremity [Not Recovered/Not Resolved]
  - Fatigue [Not Recovered/Not Resolved]
  - Off label use [None]
  - Drug ineffective [Not Recovered/Not Resolved]

NARRATIVE: CASE EVENT DATE: 20210801
